FAERS Safety Report 24143748 (Version 1)
Quarter: 2024Q3

REPORT INFORMATION
  Report Type: Spontaneous
  Country: US (occurrence: US)
  Receive Date: 20240727
  Receipt Date: 20240727
  Transmission Date: 20241016
  Serious: No
  Sender: MERCK
  Company Number: US-009507513-2407USA002625

PATIENT
  Age: 52 Year
  Sex: Male

DRUGS (6)
  1. CANCIDAS [Suspect]
     Active Substance: CASPOFUNGIN ACETATE
     Indication: Candida infection
     Dosage: 150 MILLIGRAM, QD FOR 6 WEEKS
  2. CANCIDAS [Suspect]
     Active Substance: CASPOFUNGIN ACETATE
     Indication: Pseudomonas infection
  3. CANCIDAS [Suspect]
     Active Substance: CASPOFUNGIN ACETATE
     Indication: Haematological infection
  4. NOXAFIL [Suspect]
     Active Substance: POSACONAZOLE
     Indication: Candida infection
     Dosage: 300 MILLIGRAM, QD
  5. NOXAFIL [Suspect]
     Active Substance: POSACONAZOLE
     Indication: Pseudomonas infection
  6. NOXAFIL [Suspect]
     Active Substance: POSACONAZOLE
     Indication: Haematological infection

REACTIONS (1)
  - Product use in unapproved indication [Unknown]
